FAERS Safety Report 15571084 (Version 2)
Quarter: 2018Q4

REPORT INFORMATION
  Report Type: Spontaneous
  Country: FR (occurrence: FR)
  Receive Date: 20181031
  Receipt Date: 20181115
  Transmission Date: 20190205
  Serious: Yes (Other)
  Sender: FDA-Public Use
  Company Number: FR-BAYER-2018-199303

PATIENT
  Age: 69 Year
  Sex: Male
  Weight: 79 kg

DRUGS (1)
  1. GADOVIST [Suspect]
     Active Substance: GADOBUTROL
     Indication: NUCLEAR MAGNETIC RESONANCE IMAGING BRAIN
     Dosage: 6 ML, ONCE
     Route: 042
     Dates: start: 20181022, end: 20181022

REACTIONS (3)
  - Syncope [Recovered/Resolved]
  - Loss of consciousness [Recovered/Resolved]
  - Epilepsy [Recovered/Resolved]

NARRATIVE: CASE EVENT DATE: 20181022
